FAERS Safety Report 12965123 (Version 3)
Quarter: 2016Q4

REPORT INFORMATION
  Report Type: Report from Study
  Country: US (occurrence: US)
  Receive Date: 20161122
  Receipt Date: 20161206
  Transmission Date: 20170207
  Serious: Yes (Death, Hospitalization, Other)
  Sender: FDA-Public Use
  Company Number: US-BAYER-2016-181887

PATIENT
  Age: 62 Year
  Sex: Male

DRUGS (6)
  1. ADEMPAS [Suspect]
     Active Substance: RIOCIGUAT
     Indication: PULMONARY ARTERIAL HYPERTENSION
     Dosage: 1 MG, TID
  2. ADEMPAS [Suspect]
     Active Substance: RIOCIGUAT
     Indication: PULMONARY ARTERIAL HYPERTENSION
     Dosage: 2 MG, TID
     Route: 048
     Dates: start: 20161020
  3. ADEMPAS [Suspect]
     Active Substance: RIOCIGUAT
     Indication: PULMONARY ARTERIAL HYPERTENSION
     Dosage: UNK
     Dates: start: 20160921
  4. ADEMPAS [Suspect]
     Active Substance: RIOCIGUAT
     Indication: PULMONARY ARTERIAL HYPERTENSION
     Dosage: DAILY DOSE 4.5 MG
     Dates: start: 20161102, end: 20161109
  5. LOPRESSOR [Concomitant]
     Active Substance: METOPROLOL TARTRATE
     Dosage: UNK
  6. ADEMPAS [Suspect]
     Active Substance: RIOCIGUAT
     Indication: PULMONARY ARTERIAL HYPERTENSION
     Dosage: 0.5 MG, UNK

REACTIONS (14)
  - Pneumonia [None]
  - Pneumonia [None]
  - Drug intolerance [None]
  - Respiratory failure [None]
  - Oxygen supplementation [None]
  - Chest pain [None]
  - Respiratory distress [Not Recovered/Not Resolved]
  - Cardiac failure [Fatal]
  - Productive cough [None]
  - Tachycardia [None]
  - Dyspnoea at rest [None]
  - Oedema peripheral [None]
  - Hypotension [None]
  - Unevaluable event [None]

NARRATIVE: CASE EVENT DATE: 20160920
